FAERS Safety Report 4909723-9 (Version None)
Quarter: 2006Q1

REPORT INFORMATION
  Report Type: 
  Country: None (occurrence: None)
  Receive Date: 20060209
  Receipt Date: 20060127
  Transmission Date: 20060701
  Serious: Yes (Other)
  Sender: FDA-Public Use
  Company Number: 2006014360

PATIENT
  Age: 75 Year
  Sex: Male
  Weight: 87.0906 kg

DRUGS (5)
  1. LIPITOR [Suspect]
     Indication: BLOOD CHOLESTEROL INCREASED
     Dosage: 10 MG (10 MG, 1 IN 1 D),
  2. ALTACE [Concomitant]
  3. ASPIRIN [Concomitant]
  4. MULTIVITAMIN [Concomitant]
  5. CALCIUM (CALCIUM) [Concomitant]

REACTIONS (4)
  - FLATULENCE [None]
  - HAEMORRHAGE [None]
  - NEOPLASM MALIGNANT [None]
  - PROSTATE EXAMINATION ABNORMAL [None]
